FAERS Safety Report 5246673-5 (Version None)
Quarter: 2007Q1

REPORT INFORMATION
  Report Type: 
  Country: None (occurrence: None)
  Receive Date: 20070226
  Receipt Date: 20070215
  Transmission Date: 20070707
  Serious: Yes (Other)
  Sender: FDA-Public Use
  Company Number: US-JNJFOC-20070103797

PATIENT
  Sex: Female
  Weight: 102.97 kg

DRUGS (6)
  1. TOPAMAX [Suspect]
     Indication: BENIGN INTRACRANIAL HYPERTENSION
     Route: 048
  2. REBIF [Concomitant]
     Indication: MULTIPLE SCLEROSIS
  3. BACLOFEN [Concomitant]
     Indication: MUSCLE SPASMS
  4. IBUPROFEN [Concomitant]
     Indication: PAIN
  5. AMBIEN [Concomitant]
     Indication: INSOMNIA
  6. LEXAPRO [Concomitant]
     Indication: DEPRESSION

REACTIONS (8)
  - CARDIAC HYPERTROPHY [None]
  - DIARRHOEA [None]
  - ELECTROCARDIOGRAM QT PROLONGED [None]
  - HEART RATE IRREGULAR [None]
  - HYPOKALAEMIA [None]
  - METABOLIC ACIDOSIS [None]
  - POLYURIA [None]
  - WEIGHT DECREASED [None]
